FAERS Safety Report 8900551 (Version 1)
Quarter: 2012Q4

REPORT INFORMATION
  Report Type: 
  Country: US (occurrence: US)
  Receive Date: 20121108
  Receipt Date: 20121108
  Transmission Date: 20130627
  Serious: No
  Sender: FDA-Public Use
  Company Number: US-AMGEN-USASP2012038423

PATIENT
  Sex: Male
  Weight: 106.58 kg

DRUGS (9)
  1. ENBREL [Suspect]
     Indication: PRODUCT USED FOR UNKNOWN INDICATION
     Dosage: 50 mg/ml, qwk
     Route: 058
  2. DOVONEX [Concomitant]
     Dosage: 0.005 %, UNK
  3. PROVENTIL                          /00139501/ [Concomitant]
     Dosage: 90 mug, UNK
  4. TEMOVATE [Concomitant]
     Dosage: 0.05 %, UNK
  5. ADVAIR [Concomitant]
     Dosage: 100/50 UNK
  6. TACLONEX [Concomitant]
     Dosage: UNK
  7. LOCOID [Concomitant]
     Dosage: 0.1 %, UNK
  8. STELARA [Concomitant]
     Dosage: 90 mg/ml, UNK
  9. LIDEX [Concomitant]
     Dosage: 0.05 %, UNK

REACTIONS (2)
  - Headache [Unknown]
  - Drug ineffective [Unknown]
